FAERS Safety Report 5774907-7 (Version None)
Quarter: 2008Q2

REPORT INFORMATION
  Report Type: 
  Country: None (occurrence: None)
  Receive Date: 20080616
  Receipt Date: 20080616
  Transmission Date: 20081010
  Serious: No
  Sender: FDA-Public Use
  Company Number: None

PATIENT
  Sex: Male
  Weight: 87.9 kg

DRUGS (10)
  1. CYCLOPHOSPHAMIDE [Suspect]
     Dosage: 1597 MG
  2. DOXIL [Suspect]
     Dosage: 85 MG
  3. PREDNISONE [Suspect]
     Dosage: 400 MG
  4. RITUXIMAB (MOAB C2B8 ANTI CD20, CHIMERIC) [Suspect]
     Dosage: 798 MG
  5. VINCRISTINE SULFATE [Suspect]
     Dosage: 2 MG
  6. ALTACE [Concomitant]
  7. LIPITOR [Concomitant]
  8. MAGNESIUM OXIDE [Concomitant]
  9. METFORMIN [Concomitant]
  10. METOPROLOL [Concomitant]

REACTIONS (3)
  - GRANULOCYTE COUNT DECREASED [None]
  - HAEMOGLOBIN DECREASED [None]
  - WHITE BLOOD CELL COUNT DECREASED [None]
